FAERS Safety Report 8402739-X (Version None)
Quarter: 2012Q2

REPORT INFORMATION
  Report Type: 
  Country: None (occurrence: None)
  Receive Date: 20120601
  Receipt Date: 20120524
  Transmission Date: 20120825
  Serious: Yes (Hospitalization)
  Sender: FDA-Public Use
  Company Number: US-BAYER-2012-030721

PATIENT
  Age: 23 Year
  Sex: Female

DRUGS (11)
  1. MUCINEX [Concomitant]
  2. XANAX [Concomitant]
     Dosage: 0.25 MG, HS
  3. YAZ [Suspect]
     Dosage: UNK
     Dates: start: 20090224, end: 20100127
  4. AZITHROMYCIN [Concomitant]
     Dosage: 250 MG, UNK
     Dates: start: 20091106
  5. DROSPIRENONE AND ETHINYL ESTRADIOL [Suspect]
     Dosage: UNK
     Dates: start: 20090224, end: 20100127
  6. IBUPROFEN [Concomitant]
  7. ZOLOFT [Concomitant]
     Dosage: 150 MG, QD
  8. DORYX DR [Concomitant]
     Dosage: 100 MG, UNK
     Dates: start: 20091204
  9. METRONIDAZOLE [Concomitant]
     Dosage: 500 MG, UNK
     Dates: start: 20091204
  10. YASMIN [Suspect]
     Dosage: UNK
     Dates: start: 20090224, end: 20100127
  11. DOCUSATE-S [Concomitant]
     Indication: DEEP VEIN THROMBOSIS

REACTIONS (4)
  - INJURY [None]
  - OEDEMA PERIPHERAL [None]
  - DEEP VEIN THROMBOSIS [None]
  - PAIN IN EXTREMITY [None]
